FAERS Safety Report 24331273 (Version 1)
Quarter: 2024Q3

REPORT INFORMATION
  Report Type: Spontaneous
  Country: ES (occurrence: ES)
  Receive Date: 20240918
  Receipt Date: 20240918
  Transmission Date: 20241016
  Serious: Yes (Hospitalization)
  Sender: TEVA
  Company Number: ES-TEVA-VS-3242646

PATIENT
  Age: 5 Month
  Sex: Male

DRUGS (3)
  1. CYCLOSPORINE [Suspect]
     Active Substance: CYCLOSPORINE
     Indication: Immunosuppression
     Route: 065
  2. METHYLPREDNISOLONE [Suspect]
     Active Substance: METHYLPREDNISOLONE
     Indication: Immunosuppression
     Route: 065
  3. MERCAPTOPURINE [Suspect]
     Active Substance: MERCAPTOPURINE
     Indication: Immunosuppression
     Route: 065

REACTIONS (2)
  - Viral infection [Recovered/Resolved]
  - Rotavirus infection [Recovered/Resolved]
